FAERS Safety Report 24689291 (Version 3)
Quarter: 2025Q1

REPORT INFORMATION
  Report Type: Report from Study
  Country: IN (occurrence: IN)
  Receive Date: 20241203
  Receipt Date: 20250203
  Transmission Date: 20250408
  Serious: Yes (Death, Hospitalization)
  Sender: ROCHE
  Company Number: IN-ROCHE-10000124959

PATIENT
  Age: 61 Year
  Sex: Male

DRUGS (1)
  1. TECENTRIQ [Suspect]
     Active Substance: ATEZOLIZUMAB
     Indication: Small cell lung cancer
     Route: 040
     Dates: start: 20240617

REACTIONS (5)
  - Fall [Unknown]
  - Fracture [Unknown]
  - Hypersensitivity [Unknown]
  - Disease progression [Unknown]
  - Death [Fatal]
